FAERS Safety Report 11191577 (Version 1)
Quarter: 2015Q2

REPORT INFORMATION
  Report Type: Spontaneous
  Country: US (occurrence: None)
  Receive Date: 20150612
  Receipt Date: 20150612
  Transmission Date: 20150821
  Serious: No
  Sender: FDA-Public Use
  Company Number: None

PATIENT
  Age: 60 Year
  Sex: Male
  Weight: 72.58 kg

DRUGS (11)
  1. ATENOLOL. [Concomitant]
     Active Substance: ATENOLOL
  2. CO-Q 10 [Concomitant]
  3. TYLENOL [Concomitant]
     Active Substance: ACETAMINOPHEN
  4. READI-CAT [Suspect]
     Active Substance: BARIUM SULFATE
     Indication: COMPUTERISED TOMOGRAM ABDOMEN
     Dosage: 450 ML 6 HRS PRIOR TO TES
     Route: 048
     Dates: start: 20150611, end: 20150611
  5. VERAPAMIL [Concomitant]
     Active Substance: VERAPAMIL HYDROCHLORIDE
  6. LYRICA [Concomitant]
     Active Substance: PREGABALIN
  7. SOMA [Concomitant]
     Active Substance: CARISOPRODOL
  8. READI-CAT [Suspect]
     Active Substance: BARIUM SULFATE
     Indication: COMPUTERISED TOMOGRAM
     Dosage: 450 ML 6 HRS PRIOR TO TES
     Route: 048
     Dates: start: 20150611, end: 20150611
  9. VYVANSE [Concomitant]
     Active Substance: LISDEXAMFETAMINE DIMESYLATE
  10. DYPHENHYDRAMINE [Concomitant]
     Active Substance: DIPHENHYDRAMINE
  11. OMEGA 3 FISH OIL [Concomitant]
     Active Substance: FISH OIL\OMEGA-3 FATTY ACIDS

REACTIONS (8)
  - Nausea [None]
  - Throat irritation [None]
  - Discomfort [None]
  - Muscle spasms [None]
  - Abdominal distension [None]
  - Diarrhoea [None]
  - Pruritus [None]
  - Cough [None]

NARRATIVE: CASE EVENT DATE: 20150611
